FAERS Safety Report 15991066 (Version 1)
Quarter: 2019Q1

REPORT INFORMATION
  Report Type: Spontaneous
  Country: US (occurrence: US)
  Receive Date: 20190221
  Receipt Date: 20190221
  Transmission Date: 20190418
  Serious: Yes (Other)
  Sender: FDA-Public Use
  Company Number: US-PFIZER INC-2019076147

PATIENT
  Age: 65 Year
  Sex: Male
  Weight: 68 kg

DRUGS (2)
  1. LYRICA [Suspect]
     Active Substance: PREGABALIN
     Dosage: 1 DF, DAILY (CHANGE HIS DOSAGE FROM TWO PILLS TO ONE PILL A DAY;TAKING ONE CAPSULE BY MOUTH A DAY )
     Route: 048
  2. LYRICA [Suspect]
     Active Substance: PREGABALIN
     Indication: LEG AMPUTATION
     Dosage: 2 DF, DAILY
     Route: 048

REACTIONS (3)
  - Cataract [Recovered/Resolved]
  - Product use in unapproved indication [Unknown]
  - Off label use [Unknown]
